FAERS Safety Report 9435691 (Version 1)
Quarter: 2013Q3

REPORT INFORMATION
  Report Type: Spontaneous
  Country: US (occurrence: US)
  Receive Date: 20130730
  Receipt Date: 20130730
  Transmission Date: 20140515
  Serious: Yes (Death, Other)
  Sender: FDA-Public Use
  Company Number: 2013AP006866

PATIENT
  Age: 58 Year
  Sex: Female

DRUGS (2)
  1. LEVETIRACETAM EXTENDED-RELEASE TABLETS [Suspect]
     Indication: CONVULSION
     Route: 048
  2. TEMOZOLOMIDE [Suspect]
     Indication: OLIGOASTROCYTOMA

REACTIONS (2)
  - Drug-induced liver injury [None]
  - Cholestasis [None]
